FAERS Safety Report 7982282-2 (Version None)
Quarter: 2011Q4

REPORT INFORMATION
  Report Type: 
  Country: None (occurrence: None)
  Receive Date: 20111213
  Receipt Date: 20111128
  Transmission Date: 20120403
  Serious: Yes (Hospitalization, Other)
  Sender: FDA-Public Use
  Company Number: 2011AP002729

PATIENT
  Age: 49 Year
  Sex: Male

DRUGS (9)
  1. OXAZEPAM [Concomitant]
  2. TEMAZEPAM [Concomitant]
  3. AMLODIPINE [Suspect]
     Indication: HYPERTENSION
     Dosage: 5 MG;
  4. RISPERIDONE [Suspect]
     Indication: SCHIZOPHRENIA, PARANOID TYPE
     Dosage: 2 MG;
  5. CLOZAPINE [Suspect]
     Indication: SCHIZOPHRENIA, PARANOID TYPE
     Dosage: 500 MG;QD, 325 MG; QD, 250 MG;QD, 500 MG; QD, 300 MG; QD,
  6. HALOPERIDOL [Concomitant]
  7. QUETIAPINE [Concomitant]
  8. ENALAPRIL MALEATE [Suspect]
     Indication: HYPERTENSION
     Dosage: 10 MG;QD;
  9. METOPROLOL TARTRATE [Concomitant]

REACTIONS (13)
  - LEFT VENTRICULAR HYPERTROPHY [None]
  - HYPERTENSION [None]
  - HYPERTENSIVE CRISIS [None]
  - EXTRAPYRAMIDAL DISORDER [None]
  - PERIORBITAL OEDEMA [None]
  - HEMIPARESIS [None]
  - RENAL IMPAIRMENT [None]
  - VITAMIN B12 DEFICIENCY [None]
  - ANGIOEDEMA [None]
  - OEDEMA PERIPHERAL [None]
  - TACHYCARDIA [None]
  - FOLATE DEFICIENCY [None]
  - LACUNAR INFARCTION [None]
